FAERS Safety Report 5118822-0 (Version None)
Quarter: 2006Q3

REPORT INFORMATION
  Report Type: 
  Country: None (occurrence: None)
  Receive Date: 20060927
  Receipt Date: 20060911
  Transmission Date: 20061208
  Serious: Yes (Hospitalization)
  Sender: FDA-Public Use
  Company Number: 2005BI011018

PATIENT
  Age: 55 Year
  Sex: Female

DRUGS (4)
  1. AVONEX [Suspect]
     Indication: MULTIPLE SCLEROSIS
     Dosage: 30 UG;QW; IM
     Route: 030
     Dates: start: 20031229, end: 20060701
  2. AVONEX [Suspect]
     Indication: MULTIPLE SCLEROSIS
     Dosage: 30 UG;QW; IM
     Route: 030
     Dates: start: 20060701
  3. AVONEX [Suspect]
  4. AVONEX [Suspect]

REACTIONS (6)
  - FALL [None]
  - IMPAIRED HEALING [None]
  - LUNG INFILTRATION [None]
  - LUNG INJURY [None]
  - PNEUMOTHORAX [None]
  - RIB FRACTURE [None]
